FAERS Safety Report 23348475 (Version 2)
Quarter: 2024Q1

REPORT INFORMATION
  Report Type: Spontaneous
  Country: JP (occurrence: JP)
  Receive Date: 20231228
  Receipt Date: 20240122
  Transmission Date: 20240410
  Serious: Yes (Other)
  Sender: FDA-Public Use
  Company Number: JP-TAKEDA-2023TJP017386

PATIENT
  Age: 4 Decade
  Sex: Female

DRUGS (16)
  1. TRINTELLIX [Suspect]
     Active Substance: VORTIOXETINE HYDROBROMIDE
     Indication: Depression
     Dosage: 10 MILLIGRAM
     Route: 048
     Dates: start: 20231201, end: 20240108
  2. TRINTELLIX [Suspect]
     Active Substance: VORTIOXETINE HYDROBROMIDE
     Dosage: 20 MILLIGRAM
     Route: 048
     Dates: start: 20240109
  3. FLUNITRAZEPAM [Concomitant]
     Active Substance: FLUNITRAZEPAM
     Dosage: 1 MILLIGRAM
     Route: 065
  4. ESZOPICLONE [Concomitant]
     Active Substance: ESZOPICLONE
     Dosage: 3 MILLIGRAM
     Route: 065
  5. OLANZAPINE [Concomitant]
     Active Substance: OLANZAPINE
     Dosage: 2.5 MILLIGRAM
     Route: 065
  6. TANDOSPIRONE CITRATE [Concomitant]
     Active Substance: TANDOSPIRONE CITRATE
     Dosage: 30 MILLIGRAM
     Route: 065
  7. RIVOTRIL [Concomitant]
     Active Substance: CLONAZEPAM
     Dosage: 1.5 MILLIGRAM
     Route: 065
  8. Keishikashakuyakuto [Concomitant]
     Dosage: 12 DOSAGE FORM
     Route: 065
  9. Shimotsuto [Concomitant]
     Dosage: 12 DOSAGE FORM
     Route: 065
  10. DOMPERIDONE [Concomitant]
     Active Substance: DOMPERIDONE
     Dosage: 20 MILLIGRAM
     Route: 065
  11. EPINASTINE HYDROCHLORIDE [Concomitant]
     Active Substance: EPINASTINE HYDROCHLORIDE
     Dosage: 20 MILLIGRAM
     Route: 065
  12. METOCLOPRAMIDE [Concomitant]
     Active Substance: METOCLOPRAMIDE
     Dosage: 10 MILLIGRAM
     Route: 065
  13. REBAMIPIDE [Concomitant]
     Active Substance: REBAMIPIDE
     Dosage: 300 MILLIGRAM
     Route: 065
  14. CALONAL [Concomitant]
     Active Substance: ACETAMINOPHEN
     Dosage: 1200 MILLIGRAM
     Route: 065
  15. BETAMETHASONE\CHLORPHENIRAMINE MALEATE [Concomitant]
     Active Substance: BETAMETHASONE\CHLORPHENIRAMINE MALEATE
     Dosage: 2 DOSAGE FORM
     Route: 065
  16. LYRICA [Concomitant]
     Active Substance: PREGABALIN
     Dosage: 100 MILLIGRAM
     Route: 065

REACTIONS (2)
  - Internal haemorrhage [Recovered/Resolved]
  - Pruritus [Recovered/Resolved]

NARRATIVE: CASE EVENT DATE: 20231222
